FAERS Safety Report 7486411-9 (Version None)
Quarter: 2011Q2

REPORT INFORMATION
  Report Type: 
  Country: None (occurrence: None)
  Receive Date: 20110517
  Receipt Date: 20110429
  Transmission Date: 20111010
  Serious: No
  Sender: FDA-Public Use
  Company Number: US-B.I. PHARMACEUTICALS,INC./RIDGEFIELD-2011-BP-08386BP

PATIENT
  Age: 81 Year
  Sex: Male
  Weight: 73.9 kg

DRUGS (4)
  1. CATAPRES-TTS-1 [Suspect]
     Indication: HYPERTENSION
     Dosage: 0.3 MG
     Route: 048
     Dates: start: 20100527
  2. ATENOLOL [Concomitant]
     Dosage: 50 MG
     Dates: start: 20070410
  3. TERAZOSIN HCL [Concomitant]
     Dosage: 3 MG
     Dates: start: 20071017
  4. AMLODIPINE BESYLATE [Concomitant]
     Dosage: 5 MG
     Dates: start: 20110413

REACTIONS (1)
  - BLOOD PRESSURE FLUCTUATION [None]
